FAERS Safety Report 14084776 (Version 1)
Quarter: 2017Q4

REPORT INFORMATION
  Report Type: Spontaneous
  Country: US (occurrence: None)
  Receive Date: 20171013
  Receipt Date: 20171013
  Transmission Date: 20180321
  Serious: Yes (Other)
  Sender: FDA-Public Use
  Company Number: None

PATIENT
  Age: 29 Month
  Sex: Female
  Weight: 11.34 kg

DRUGS (1)
  1. CYPROHEPTADINE 2MG/5ML [Suspect]
     Active Substance: CYPROHEPTADINE
     Indication: FAILURE TO THRIVE
     Route: 048
     Dates: start: 20170516, end: 20170718

REACTIONS (2)
  - Skin discolouration [None]
  - Cyanosis [None]

NARRATIVE: CASE EVENT DATE: 20170718
